FAERS Safety Report 11043605 (Version 1)
Quarter: 2015Q2

REPORT INFORMATION
  Report Type: Spontaneous
  Country: US (occurrence: None)
  Receive Date: 20150416
  Receipt Date: 20150416
  Transmission Date: 20150821
  Serious: Yes (Other)
  Sender: FDA-Public Use
  Company Number: None

PATIENT
  Age: 68 Year
  Sex: Female
  Weight: 72.58 kg

DRUGS (1)
  1. LEVOFLOXACIN, 500 MG [Suspect]
     Active Substance: LEVOFLOXACIN
     Indication: EAR INFECTION
     Route: 048
     Dates: start: 20150209, end: 20150211

REACTIONS (1)
  - Tendon rupture [None]

NARRATIVE: CASE EVENT DATE: 20150209
